FAERS Safety Report 8032279-1 (Version None)
Quarter: 2012Q1

REPORT INFORMATION
  Report Type: 
  Country: None (occurrence: None)
  Receive Date: 20120110
  Receipt Date: 20120104
  Transmission Date: 20120608
  Serious: No
  Sender: FDA-Public Use
  Company Number: US-BIOGENIDEC-2012BI000524

PATIENT
  Sex: Female

DRUGS (1)
  1. TYSABRI [Suspect]
     Indication: MULTIPLE SCLEROSIS
     Route: 042
     Dates: start: 20111014

REACTIONS (6)
  - MALAISE [None]
  - PAIN [None]
  - SOMNOLENCE [None]
  - NEURALGIA [None]
  - VISUAL ACUITY REDUCED [None]
  - PAIN IN EXTREMITY [None]
